FAERS Safety Report 23015814 (Version 5)
Quarter: 2025Q4

REPORT INFORMATION
  Report Type: Report from Study
  Country: EU (occurrence: EU)
  Receive Date: 20231002
  Receipt Date: 20251203
  Transmission Date: 20260117
  Serious: Yes (Hospitalization)
  Sender: NOVARTIS
  Company Number: EU-002147023-NVSC2023DE211895

PATIENT
  Age: 35 Year
  Sex: Female
  Weight: 51 kg

DRUGS (2)
  1. COSENTYX [Suspect]
     Active Substance: SECUKINUMAB
     Indication: Psoriasis
     Dosage: 300 MG, QW (1 D/WK)
     Route: 058
     Dates: start: 20230126, end: 20230505
  2. IBUPROFEN [Concomitant]
     Active Substance: IBUPROFEN
     Indication: Menstrual disorder
     Dosage: UNK
     Route: 065

REACTIONS (18)
  - Drug eruption [Not Recovered/Not Resolved]
  - Dermatitis exfoliative generalised [Recovering/Resolving]
  - Rash erythematous [Unknown]
  - Papule [Unknown]
  - Skin exfoliation [Unknown]
  - Urticaria [Unknown]
  - Superficial inflammatory dermatosis [Unknown]
  - Anisocytosis [Unknown]
  - Poikilocytosis [Unknown]
  - Drug hypersensitivity [Unknown]
  - Ovarian cyst [Not Recovered/Not Resolved]
  - Skin plaque [Unknown]
  - Skin lesion [Unknown]
  - Erythema [Unknown]
  - Pruritus [Unknown]
  - Night sweats [Not Recovered/Not Resolved]
  - Dysuria [Not Recovered/Not Resolved]
  - Menstrual discomfort [Not Recovered/Not Resolved]

NARRATIVE: CASE EVENT DATE: 20230306
